FAERS Safety Report 7829042-0 (Version None)
Quarter: 2011Q4

REPORT INFORMATION
  Report Type: 
  Country: None (occurrence: None)
  Receive Date: 20111020
  Receipt Date: 20111012
  Transmission Date: 20120403
  Serious: Yes (Hospitalization, Other)
  Sender: FDA-Public Use
  Company Number: CA-JNJFOC-20110611349

PATIENT
  Age: 53 Year
  Sex: Female
  Weight: 78 kg

DRUGS (10)
  1. SIMPONI [Suspect]
     Route: 058
     Dates: start: 20100412
  2. APO-HYDROXYQUINE [Concomitant]
     Route: 048
     Dates: start: 20040701
  3. PREMARIN [Concomitant]
     Indication: POSTMENOPAUSE
     Route: 048
     Dates: start: 19980101
  4. FOLIC ACID [Concomitant]
     Indication: PROPHYLAXIS
     Route: 048
     Dates: start: 20090818
  5. SIMPONI [Suspect]
     Indication: RHEUMATOID ARTHRITIS
     Route: 058
     Dates: start: 20110310
  6. APO-MEDROXY [Concomitant]
     Route: 048
     Dates: start: 20040101
  7. METHOTREXATE [Concomitant]
     Dates: start: 20090929
  8. PANTOPRAZOLE [Concomitant]
     Route: 048
     Dates: start: 20000101
  9. AMITRIPTYLINE HCL [Concomitant]
     Indication: MIGRAINE
     Route: 048
     Dates: start: 20001114
  10. SYNTHROID [Concomitant]
     Indication: HYPOTHYROIDISM
     Dates: start: 20000101

REACTIONS (1)
  - THYROID CANCER [None]
